FAERS Safety Report 6982334-X (Version None)
Quarter: 2010Q3

REPORT INFORMATION
  Report Type: 
  Country: None (occurrence: None)
  Receive Date: 20100914
  Receipt Date: 20091221
  Transmission Date: 20110219
  Serious: No
  Sender: FDA-Public Use
  Company Number: US-PFIZER INC-2009313131

PATIENT
  Sex: Female
  Weight: 53 kg

DRUGS (5)
  1. LYRICA [Suspect]
     Indication: NEURALGIA
     Dosage: 175 MG DAILY
     Route: 048
     Dates: start: 20091101, end: 20091219
  2. LYRICA [Suspect]
     Dosage: 25 MG IN THE MORNING AND 50 MG AT NIGHT
     Dates: start: 20091219
  3. HYDROCHLOROTHIAZIDE [Concomitant]
  4. WELLBUTRIN [Concomitant]
  5. MULTI-VITAMINS [Concomitant]
     Dosage: UNK

REACTIONS (2)
  - ABDOMINAL DISCOMFORT [None]
  - WEIGHT DECREASED [None]
